FAERS Safety Report 9001956 (Version 1)
Quarter: 2013Q1

REPORT INFORMATION
  Report Type: Spontaneous
  Country: CA (occurrence: CA)
  Receive Date: 20130108
  Receipt Date: 20130108
  Transmission Date: 20140127
  Serious: Yes (Other)
  Sender: FDA-Public Use
  Company Number: CA-AMGEN-CANSP2013000128

PATIENT
  Age: 82 Year
  Sex: Female
  Weight: 42.73 kg

DRUGS (1)
  1. PROLIA [Suspect]
     Indication: OSTEOPOROSIS POSTMENOPAUSAL
     Dosage: UNK
     Dates: start: 20120822

REACTIONS (3)
  - Swollen tongue [Unknown]
  - Pharyngeal oedema [Unknown]
  - Gastric haemorrhage [Unknown]
